FAERS Safety Report 14010369 (Version 2)
Quarter: 2017Q4

REPORT INFORMATION
  Report Type: Spontaneous
  Country: JP (occurrence: JP)
  Receive Date: 20170926
  Receipt Date: 20171127
  Transmission Date: 20180321
  Serious: Yes (Other)
  Sender: FDA-Public Use
  Company Number: JP-009507513-1709JPN002102J

PATIENT
  Age: 89 Year
  Sex: Female

DRUGS (3)
  1. REMIFENTANIL HYDROCHLORIDE. [Concomitant]
     Active Substance: REMIFENTANIL HYDROCHLORIDE
     Indication: INDUCTION OF ANAESTHESIA
     Route: 051
  2. MIDAZOLAM [Concomitant]
     Active Substance: MIDAZOLAM HYDROCHLORIDE
     Indication: INDUCTION OF ANAESTHESIA
     Dosage: 1 MG/KG, UNK
     Route: 051
  3. ESLAX INTRAVENOUS 25MG/2.5ML [Suspect]
     Active Substance: ROCURONIUM BROMIDE
     Indication: NEUROMUSCULAR BLOCKING THERAPY
     Dosage: UNK
     Route: 042

REACTIONS (2)
  - Bradycardia [Unknown]
  - Blood pressure decreased [Unknown]
